FAERS Safety Report 11891261 (Version 1)
Quarter: 2016Q1

REPORT INFORMATION
  Report Type: Report from Study
  Country: CN (occurrence: CN)
  Receive Date: 20160106
  Receipt Date: 20160106
  Transmission Date: 20160526
  Serious: Yes (Other)
  Sender: FDA-Public Use
  Company Number: CN-BRISTOL-MYERS SQUIBB COMPANY-BMS-2015-088383

PATIENT
  Age: 58 Year
  Sex: Female

DRUGS (4)
  1. CETUXIMAB [Suspect]
     Active Substance: CETUXIMAB
     Indication: COLON CANCER METASTATIC
     Dosage: 100 MG, Q2WK
     Route: 041
     Dates: start: 20150702, end: 20150831
  2. CETUXIMAB [Suspect]
     Active Substance: CETUXIMAB
     Dosage: 100 MG, Q2WK
     Route: 041
     Dates: start: 20151027
  3. IRINOTECAN [Suspect]
     Active Substance: IRINOTECAN
     Indication: COLON CANCER METASTATIC
     Dosage: UNK
     Route: 065
     Dates: start: 2015, end: 20150831
  4. IRINOTECAN [Suspect]
     Active Substance: IRINOTECAN
     Dosage: UNK
     Route: 065
     Dates: start: 2015

REACTIONS (4)
  - Herpes zoster [Recovered/Resolved]
  - Paronychia [Recovered/Resolved]
  - Bone marrow failure [Recovered/Resolved]
  - Rash [Not Recovered/Not Resolved]

NARRATIVE: CASE EVENT DATE: 20150702
